FAERS Safety Report 13496378 (Version 1)
Quarter: 2017Q2

REPORT INFORMATION
  Report Type: Spontaneous
  Country: US (occurrence: US)
  Receive Date: 20170428
  Receipt Date: 20170428
  Transmission Date: 20170830
  Serious: Yes (Hospitalization)
  Sender: FDA-Public Use
  Company Number: None

PATIENT
  Age: 87 Year
  Sex: Male
  Weight: 94 kg

DRUGS (1)
  1. TOUJEO [Suspect]
     Active Substance: INSULIN GLARGINE
     Indication: TYPE 2 DIABETES MELLITUS
     Route: 058
     Dates: start: 20150923, end: 20170423

REACTIONS (4)
  - Device malfunction [None]
  - Wrong technique in device usage process [None]
  - Accidental overdose [None]
  - Blood glucose increased [None]

NARRATIVE: CASE EVENT DATE: 20170427
